FAERS Safety Report 5278102-X (Version None)
Quarter: 2007Q1

REPORT INFORMATION
  Report Type: 
  Country: None (occurrence: None)
  Receive Date: 20061213
  Receipt Date: 20051103
  Transmission Date: 20070707
  Serious: Yes (Hospitalization)
  Sender: FDA-Public Use
  Company Number: 2005UW15757

PATIENT
  Age: 25 Year
  Sex: Male
  Weight: 80.2867 kg

DRUGS (4)
  1. SEROQUEL [Suspect]
     Indication: BIPOLAR DISORDER
     Dosage: 5600 MG [PO
     Route: 048
     Dates: start: 20051008
  2. LEXAPRO [Concomitant]
  3. WELLBUTRIN [Concomitant]
  4. TRILEPTAL [Concomitant]

REACTIONS (6)
  - BLOOD POTASSIUM ABNORMAL [None]
  - DIZZINESS [None]
  - HEADACHE [None]
  - OVERDOSE [None]
  - SINUS TACHYCARDIA [None]
  - SUICIDE ATTEMPT [None]
